FAERS Safety Report 9661184 (Version 1)
Quarter: 2013Q4

REPORT INFORMATION
  Report Type: Spontaneous
  Country: US (occurrence: US)
  Receive Date: 20131031
  Receipt Date: 20131031
  Transmission Date: 20140711
  Serious: No
  Sender: FDA-Public Use
  Company Number: US-ENDO PHARMACEUTICALS INC.-HCDA20120012

PATIENT
  Sex: Male
  Weight: 57.66 kg

DRUGS (1)
  1. HYDROCODONE/ACETAMINOPHEN 10MG/325MG [Suspect]
     Indication: PAIN
     Route: 048
     Dates: start: 1990

REACTIONS (2)
  - Chest pain [Unknown]
  - Drug effect decreased [Not Recovered/Not Resolved]
